FAERS Safety Report 9249412 (Version 2)
Quarter: 2016Q1

REPORT INFORMATION
  Report Type: Spontaneous
  Country: US (occurrence: US)
  Receive Date: 20130423
  Receipt Date: 20160215
  Transmission Date: 20160526
  Serious: No
  Sender: FDA-Public Use
  Company Number: US-ASTRAZENECA-2013SE22941

PATIENT
  Age: 897 Month
  Sex: Female
  Weight: 69.4 kg

DRUGS (4)
  1. LEVOFLOXACIN. [Suspect]
     Active Substance: LEVOFLOXACIN
     Indication: SINUSITIS
  2. IBRANCE [Suspect]
     Active Substance: PALBOCICLIB
     Indication: METASTASES TO BONE
  3. FASLODEX [Suspect]
     Active Substance: FULVESTRANT
     Indication: BREAST CANCER
     Route: 030
     Dates: start: 200612
  4. ZOMETA [Suspect]
     Active Substance: ZOLEDRONIC ACID
     Indication: BONE MARROW DISORDER
     Dosage: EVERY OTHER MOUNTH
     Route: 065

REACTIONS (22)
  - Myalgia [Not Recovered/Not Resolved]
  - Tumour marker increased [Unknown]
  - Hypophagia [Not Recovered/Not Resolved]
  - Pain [Unknown]
  - Pyrexia [Not Recovered/Not Resolved]
  - Nausea [Unknown]
  - Urinary incontinence [Unknown]
  - Feeling abnormal [Unknown]
  - Malaise [Unknown]
  - Diarrhoea [Not Recovered/Not Resolved]
  - Muscle tightness [Unknown]
  - Dysgeusia [Not Recovered/Not Resolved]
  - Intentional product misuse [Not Recovered/Not Resolved]
  - Influenza [Unknown]
  - Anal incontinence [Unknown]
  - Abdominal discomfort [Not Recovered/Not Resolved]
  - White blood cell count increased [Not Recovered/Not Resolved]
  - Fatigue [Not Recovered/Not Resolved]
  - Weight decreased [Not Recovered/Not Resolved]
  - Disease progression [Unknown]
  - Balance disorder [Not Recovered/Not Resolved]
  - Sinusitis [Recovered/Resolved]

NARRATIVE: CASE EVENT DATE: 201510
